FAERS Safety Report 18705791 (Version 1)
Quarter: 2021Q1

REPORT INFORMATION
  Report Type: Spontaneous
  Country: DE (occurrence: DE)
  Receive Date: 20210106
  Receipt Date: 20210106
  Transmission Date: 20210419
  Serious: No
  Sender: FDA-Public Use
  Company Number: DE-HORMOSAN PHARMA GMBH-2020-03128

PATIENT
  Sex: Female

DRUGS (1)
  1. OXYCODONE HCL 2 X TAGLICH HORMOSAN 20 MG RETARDTABLETTEN [Suspect]
     Active Substance: OXYCODONE HYDROCHLORIDE
     Indication: PRODUCT USED FOR UNKNOWN INDICATION
     Dosage: UNK, SINCE PAST 10 YEARS
     Route: 065

REACTIONS (4)
  - Manufacturing materials issue [Unknown]
  - Pain [Unknown]
  - Withdrawal syndrome [Unknown]
  - Poor quality product administered [Unknown]
